FAERS Safety Report 6785848-0 (Version None)
Quarter: 2010Q2

REPORT INFORMATION
  Report Type: 
  Country: None (occurrence: None)
  Receive Date: 20100623
  Receipt Date: 20100612
  Transmission Date: 20101027
  Serious: Yes (Hospitalization, Other)
  Sender: FDA-Public Use
  Company Number: US-PFIZER INC-001-0902-M0100020

PATIENT
  Sex: Female
  Weight: 81.65 kg

DRUGS (13)
  1. NARDIL [Suspect]
     Dosage: 15 MG, ONE TABLET IN THE MORNING, ONE IN THE AFTERNOON, ONE AT EVENING AND 6.5 TABLE BEDTIME
     Route: 048
  2. IPRATROPIUM BROMIDE [Concomitant]
     Route: 055
  3. ESOMEPRAZOLE [Concomitant]
     Route: 048
  4. SERETIDE MITE [Concomitant]
     Route: 055
  5. BENADRYL [Concomitant]
  6. KLONOPIN [Concomitant]
     Dosage: UNK
     Route: 048
  7. HUMIBID [Concomitant]
  8. EXTRA STRENGTH TYLENOL [Concomitant]
     Route: 048
  9. PETHIDINE HCL [Concomitant]
  10. MUCINEX [Concomitant]
     Dosage: UNK
  11. SYNTHROID [Concomitant]
     Dosage: UNK
     Route: 048
  12. MAXAIR [Concomitant]
     Indication: ASTHMA
     Dosage: UNK
  13. XYLOMETAZOLINE HYDROCHLORIDE [Concomitant]
     Dosage: UNK

REACTIONS (16)
  - BLOOD PRESSURE INCREASED [None]
  - COLD SWEAT [None]
  - CONSTIPATION [None]
  - DRUG ADMINISTRATION ERROR [None]
  - DRUG INTERACTION [None]
  - EUPHORIC MOOD [None]
  - FALL [None]
  - FLUSHING [None]
  - FRACTURE [None]
  - HYPERHIDROSIS [None]
  - INSOMNIA [None]
  - INTENTIONAL OVERDOSE [None]
  - IRRITABILITY [None]
  - SOMNOLENCE [None]
  - URTICARIA [None]
  - WEIGHT INCREASED [None]
